FAERS Safety Report 15812025 (Version 1)
Quarter: 2019Q1

REPORT INFORMATION
  Report Type: Spontaneous
  Country: US (occurrence: US)
  Receive Date: 20190110
  Receipt Date: 20190110
  Transmission Date: 20190417
  Serious: Yes (Disabling)
  Sender: FDA-Public Use
  Company Number: None

PATIENT
  Age: 59 Year
  Sex: Male
  Weight: 81 kg

DRUGS (6)
  1. MAGNESIUM MULTI SUPPLEMENT [Concomitant]
  2. FLUVOXAMINE ER 150 MG CAP [Suspect]
     Active Substance: FLUVOXAMINE
     Indication: OBSESSIVE-COMPULSIVE DISORDER
     Dosage: ?          QUANTITY:2 CAPSULE(S);?
     Route: 048
     Dates: start: 20181212, end: 20190110
  3. FLUVOXAMINE ER 150 MG CAP [Suspect]
     Active Substance: FLUVOXAMINE
     Indication: ANXIETY
     Dosage: ?          QUANTITY:2 CAPSULE(S);?
     Route: 048
     Dates: start: 20181212, end: 20190110
  4. LUVOX [Concomitant]
     Active Substance: FLUVOXAMINE MALEATE
  5. FLUVOXAMINE ER 150 MG CAP [Suspect]
     Active Substance: FLUVOXAMINE
     Indication: DEPRESSION
     Dosage: ?          QUANTITY:2 CAPSULE(S);?
     Route: 048
     Dates: start: 20181212, end: 20190110
  6. AMPHETAMINE 10 MG [Concomitant]

REACTIONS (1)
  - Drug effect incomplete [None]

NARRATIVE: CASE EVENT DATE: 20181212
